FAERS Safety Report 4847245-4 (Version None)
Quarter: 2005Q4

REPORT INFORMATION
  Report Type: 
  Country: None (occurrence: None)
  Receive Date: 20051207
  Receipt Date: 20051115
  Transmission Date: 20060501
  Serious: Yes (Other)
  Sender: FDA-Public Use
  Company Number: B0401035A

PATIENT
  Age: 82 Year
  Sex: Male
  Weight: 60 kg

DRUGS (6)
  1. AUGMENTIN [Suspect]
     Indication: BRONCHITIS
     Dosage: 1G TWICE PER DAY
     Route: 048
     Dates: start: 20050823, end: 20050901
  2. FLUIMUCIL [Concomitant]
     Indication: BRONCHITIS
     Dosage: 3SAC PER DAY
     Route: 048
     Dates: start: 20050823, end: 20050902
  3. NASONEX [Concomitant]
     Indication: BRONCHITIS
     Route: 065
     Dates: start: 20050823, end: 20050902
  4. ENALAPRIL MALEATE [Concomitant]
     Indication: HYPERTENSION
     Dosage: 20MG PER DAY
     Route: 048
  5. JOSIR [Concomitant]
     Indication: BENIGN PROSTATIC HYPERPLASIA
     Dosage: 1CAP PER DAY
     Route: 048
  6. ACETAMINOPHEN [Concomitant]
     Indication: PAIN
     Route: 048

REACTIONS (15)
  - ABDOMINAL PAIN [None]
  - ABDOMINAL PAIN UPPER [None]
  - ANOREXIA [None]
  - ASTHENIA [None]
  - BLOOD BILIRUBIN ABNORMAL [None]
  - CHROMATURIA [None]
  - DIARRHOEA [None]
  - FAECES PALE [None]
  - HEPATITIS [None]
  - JAUNDICE [None]
  - PRURITUS [None]
  - RENAL CYST [None]
  - TRANSAMINASES ABNORMAL [None]
  - VOMITING [None]
  - WEIGHT DECREASED [None]
